FAERS Safety Report 9473008 (Version 1)
Quarter: 2013Q3

REPORT INFORMATION
  Report Type: Spontaneous
  Country: US (occurrence: US)
  Receive Date: 20130823
  Receipt Date: 20130823
  Transmission Date: 20140515
  Serious: No
  Sender: FDA-Public Use
  Company Number: US-BRISTOL-MYERS SQUIBB COMPANY-17330879

PATIENT
  Sex: Female

DRUGS (3)
  1. SPRYCEL [Suspect]
  2. OMEPRAZOLE [Suspect]
     Indication: GASTROOESOPHAGEAL REFLUX DISEASE
     Dosage: OFF FOR A FEW DAYS
  3. TUMS [Concomitant]
     Dosage: 2 HOURS BEFORE OR 2 HOURS AFTER THE SPRYCEL

REACTIONS (2)
  - Insomnia [Unknown]
  - Gastrooesophageal reflux disease [Unknown]
